FAERS Safety Report 10236223 (Version 1)
Quarter: 2014Q1

REPORT INFORMATION
  Report Type: Spontaneous
  Country: US (occurrence: None)
  Receive Date: 20140306
  Receipt Date: 20140306
  Transmission Date: 20141002
  Serious: Yes (Other)
  Sender: FDA-Public Use
  Company Number: 163-21880-13032721

PATIENT
  Age: 76 Year
  Sex: Male
  Weight: 88.45 kg

DRUGS (1)
  1. REVLIMID ( LENALIDOMIDE) (25 MILLIGRAM, CAPSULES) [Suspect]
     Indication: PLASMA CELL MYELOMA
     Dosage: 25 MG, 7 IN 7 D, PO
     Route: 048
     Dates: start: 20130312

REACTIONS (1)
  - Urinary sediment abnormal [None]
